FAERS Safety Report 19756869 (Version 3)
Quarter: 2021Q3

REPORT INFORMATION
  Report Type: Spontaneous
  Country: NL (occurrence: NL)
  Receive Date: 20210827
  Receipt Date: 20210909
  Transmission Date: 20211014
  Serious: Yes (Life-Threatening, Hospitalization, Other)
  Sender: FDA-Public Use
  Company Number: NL-MYLANLABS-2021M1056217

PATIENT
  Age: 59 Year
  Sex: Female
  Weight: 73 kg

DRUGS (17)
  1. DUPIXENT [Suspect]
     Active Substance: DUPILUMAB
     Indication: EOSINOPHILIC GRANULOMATOSIS WITH POLYANGIITIS
  2. PREDNISONE. [Suspect]
     Active Substance: PREDNISONE
     Dosage: 20 MG QD
  3. PREDNISONE. [Suspect]
     Active Substance: PREDNISONE
     Dosage: 60 MG QD
  4. PREDNISONE. [Suspect]
     Active Substance: PREDNISONE
     Dosage: UNK
  5. MEPOLIZUMAB [Concomitant]
     Active Substance: MEPOLIZUMAB
     Indication: ASTHMA
     Dosage: UNK
  6. PREDNISONE. [Suspect]
     Active Substance: PREDNISONE
     Dosage: UNK
  7. BENRALIZUMAB. [Concomitant]
     Active Substance: BENRALIZUMAB
     Indication: ASTHMA
     Dosage: UNK
  8. PREDNISONE. [Suspect]
     Active Substance: PREDNISONE
     Dosage: UNK
  9. PREDNISONE. [Suspect]
     Active Substance: PREDNISONE
     Dosage: 10 MG QD
  10. PREDNISONE. [Suspect]
     Active Substance: PREDNISONE
     Dosage: 15 MG, QD
  11. PREDNISONE. [Suspect]
     Active Substance: PREDNISONE
     Dosage: UNK; 2X30 MG OF PREDNISONE
  12. PREDNISONE. [Suspect]
     Active Substance: PREDNISONE
     Dosage: UNK
  13. PREDNISONE. [Suspect]
     Active Substance: PREDNISONE
     Dosage: 10 MG QD
  14. PREDNISONE. [Suspect]
     Active Substance: PREDNISONE
     Indication: ASTHMA
     Dosage: 5 MG QD
  15. PREDNISONE. [Suspect]
     Active Substance: PREDNISONE
     Dosage: UNK
  16. PREDNISONE. [Suspect]
     Active Substance: PREDNISONE
     Dosage: UNK
  17. DUPIXENT [Suspect]
     Active Substance: DUPILUMAB
     Indication: ASTHMA
     Dosage: UNK

REACTIONS (26)
  - Eosinophilic granulomatosis with polyangiitis [Recovering/Resolving]
  - Cough [Recovering/Resolving]
  - Dysarthria [Recovered/Resolved]
  - Arthralgia [Not Recovered/Not Resolved]
  - Disturbance in attention [Recovered/Resolved]
  - Dyspnoea [Recovering/Resolving]
  - Cerebral infarction [Recovered/Resolved]
  - Malaise [Recovering/Resolving]
  - Acute coronary syndrome [Unknown]
  - Rebound effect [Recovering/Resolving]
  - Drug abuse [Unknown]
  - Nervous system disorder [Recovered/Resolved]
  - Facial pain [Recovering/Resolving]
  - Eosinophil count increased [Recovering/Resolving]
  - Cardiac arrest [Recovered/Resolved]
  - Fatigue [Recovering/Resolving]
  - Dyspnoea exertional [Recovered/Resolved]
  - Condition aggravated [Recovering/Resolving]
  - Cerebral ischaemia [Recovered/Resolved]
  - Pyrexia [Recovering/Resolving]
  - Oropharyngeal pain [Recovering/Resolving]
  - Muscular weakness [Recovered/Resolved]
  - Chronic sinusitis [Recovering/Resolving]
  - Eosinophilic pneumonia [Recovering/Resolving]
  - Eosinophilia [Recovering/Resolving]
  - Unintentional use for unapproved indication [Unknown]

NARRATIVE: CASE EVENT DATE: 20180928
